FAERS Safety Report 5499918-0 (Version None)
Quarter: 2007Q4

REPORT INFORMATION
  Report Type: 
  Country: None (occurrence: None)
  Receive Date: 20071026
  Receipt Date: 20071016
  Transmission Date: 20080405
  Serious: Yes (Other)
  Sender: FDA-Public Use
  Company Number: US-PFIZER INC-2007087634

PATIENT
  Sex: Male
  Weight: 106.1 kg

DRUGS (6)
  1. CHANTIX [Suspect]
     Indication: EX-SMOKER
     Dates: start: 20070808, end: 20070905
  2. AVALIDE [Concomitant]
  3. MOBIC [Concomitant]
  4. CETIRIZINE/PSEUDOEPHEDRINE [Concomitant]
  5. ACETYLSALICYLIC ACID SRT [Concomitant]
  6. AZITHROMYCIN [Concomitant]

REACTIONS (4)
  - BLOOD TRIGLYCERIDES INCREASED [None]
  - DIABETES MELLITUS [None]
  - DRUG INTOLERANCE [None]
  - INFECTION [None]
